FAERS Safety Report 4713584-0 (Version None)
Quarter: 2005Q3

REPORT INFORMATION
  Report Type: 
  Country: None (occurrence: None)
  Receive Date: 20050712
  Receipt Date: 20041109
  Transmission Date: 20060218
  Serious: Yes (Other)
  Sender: FDA-Public Use
  Company Number: 00072A

PATIENT
  Age: 40 Year
  Sex: Male

DRUGS (1)
  1. FLUROX [Suspect]
     Indication: INTRAOCULAR PRESSURE TEST
     Dosage: 1 DROP BOTH EYES

REACTIONS (2)
  - NAUSEA [None]
  - VOMITING [None]
